FAERS Safety Report 6558056-6 (Version None)
Quarter: 2010Q1

REPORT INFORMATION
  Report Type: 
  Country: None (occurrence: None)
  Receive Date: 20100129
  Receipt Date: 20100126
  Transmission Date: 20100710
  Serious: Yes (Life-Threatening)
  Sender: FDA-Public Use
  Company Number: JP-BRACCO-001372

PATIENT
  Age: 79 Year
  Sex: Female

DRUGS (19)
  1. IOPAMIDOL [Suspect]
     Indication: ARTERIOGRAM CORONARY
     Route: 022
     Dates: start: 20080820, end: 20080820
  2. IOPAMIDOL [Suspect]
     Indication: PERCUTANEOUS CORONARY INTERVENTION
     Route: 022
     Dates: start: 20080820, end: 20080820
  3. CRAVIT [Suspect]
     Indication: INFECTION
     Route: 048
     Dates: start: 20080901, end: 20080905
  4. SIGMART [Suspect]
     Route: 048
     Dates: end: 20080904
  5. MILMAG [Suspect]
     Route: 048
     Dates: end: 20080904
  6. ACTOS [Suspect]
     Route: 048
     Dates: end: 20080904
  7. MEVALOTIN [Suspect]
     Route: 048
     Dates: end: 20080904
  8. OLMETEC [Suspect]
     Route: 048
     Dates: end: 20080904
  9. PANALDINE [Suspect]
     Route: 048
     Dates: end: 20080904
  10. PLAVIX [Suspect]
     Route: 048
     Dates: start: 20080904, end: 20080905
  11. TAKEPRON [Suspect]
     Route: 048
  12. PLETAL [Suspect]
     Route: 048
  13. HEPARIN                            /00027701/ [Concomitant]
     Route: 065
     Dates: start: 20080905
  14. ASPIRIN [Suspect]
     Indication: MYOCARDIAL INFARCTION
     Route: 048
     Dates: start: 20080905
  15. ARTIST [Suspect]
     Route: 048
     Dates: end: 20080901
  16. GLYCORAN [Suspect]
     Route: 048
     Dates: start: 20080901
  17. CEFAMEZIN                          /00288502/ [Suspect]
     Route: 065
     Dates: start: 20080901
  18. PENTCILLIN [Suspect]
     Indication: INFECTION
     Route: 065
     Dates: start: 20080901
  19. SIVELESTAT [Concomitant]

REACTIONS (3)
  - ACUTE GENERALISED EXANTHEMATOUS PUSTULOSIS [None]
  - ACUTE RESPIRATORY DISTRESS SYNDROME [None]
  - RENAL IMPAIRMENT [None]
